FAERS Safety Report 6087890-4 (Version None)
Quarter: 2009Q1

REPORT INFORMATION
  Report Type: 
  Country: None (occurrence: None)
  Receive Date: 20090223
  Receipt Date: 20081221
  Transmission Date: 20090719
  Serious: No
  Sender: FDA-Public Use
  Company Number: US-B.I. PHARMACEUTICALS,INC./RIDGEFIELD-2008-BP-19068BP

PATIENT
  Age: 87 Year
  Sex: Female

DRUGS (3)
  1. COMBIVENT [Suspect]
     Indication: EMPHYSEMA
     Dosage: 2PUF
     Route: 055
     Dates: start: 19980101
  2. SEREVENT [Concomitant]
     Indication: EMPHYSEMA
  3. PULMICORT [Concomitant]
     Indication: EMPHYSEMA

REACTIONS (4)
  - INCORRECT DOSE ADMINISTERED [None]
  - PHARYNGITIS [None]
  - RHINORRHOEA [None]
  - THROAT IRRITATION [None]
